FAERS Safety Report 6957454-6 (Version None)
Quarter: 2010Q3

REPORT INFORMATION
  Report Type: 
  Country: None (occurrence: None)
  Receive Date: 20100831
  Receipt Date: 20100825
  Transmission Date: 20110219
  Serious: Yes (Death)
  Sender: FDA-Public Use
  Company Number: PHHY2010JP56368

PATIENT
  Sex: Female

DRUGS (4)
  1. TEGRETOL [Suspect]
     Dosage: UNK
     Route: 048
  2. MIANSERIN HYDROCHLORIDE [Suspect]
     Dosage: UNK
     Route: 048
  3. LEVOMEPROMAZINE MALEATE [Suspect]
     Dosage: UNK
     Route: 048
  4. PHENOBARBITAL [Suspect]
     Dosage: UNK
     Route: 048

REACTIONS (3)
  - DRUG LEVEL INCREASED [None]
  - DRUG TOXICITY [None]
  - MULTIPLE DRUG OVERDOSE [None]
